FAERS Safety Report 12894030 (Version 2)
Quarter: 2017Q1

REPORT INFORMATION
  Report Type: Spontaneous
  Country: US (occurrence: US)
  Receive Date: 20161028
  Receipt Date: 20170221
  Transmission Date: 20170428
  Serious: No
  Sender: FDA-Public Use
  Company Number: US-PFIZER INC-2016501460

PATIENT
  Age: 67 Year
  Sex: Male
  Weight: 86.18 kg

DRUGS (1)
  1. VIAGRA [Suspect]
     Active Substance: SILDENAFIL CITRATE
     Dosage: 100 MG, UNK

REACTIONS (2)
  - Drug dispensing error [Unknown]
  - Drug effect incomplete [Unknown]
